FAERS Safety Report 19720783 (Version 1)
Quarter: 2021Q3

REPORT INFORMATION
  Report Type: Spontaneous
  Country: US (occurrence: US)
  Receive Date: 20210819
  Receipt Date: 20210819
  Transmission Date: 20211014
  Serious: Yes (Hospitalization)
  Sender: FDA-Public Use
  Company Number: None

PATIENT
  Age: 77 Year
  Sex: Male

DRUGS (11)
  1. CARBIDOPA/LEVODOPA [Concomitant]
     Active Substance: CARBIDOPA\LEVODOPA
  2. PROBIOTIC [Concomitant]
     Active Substance: PROBIOTICS NOS
  3. VITAMIN B?COMPLEX + B12 [Concomitant]
  4. LIPITOR [Concomitant]
     Active Substance: ATORVASTATIN CALCIUM
  5. LOKELMA [Suspect]
     Active Substance: SODIUM ZIRCONIUM CYCLOSILICATE
     Indication: HYPERKALAEMIA
     Dosage: ?          OTHER FREQUENCY:THREE TIMES WEEKLY;?
     Route: 048
     Dates: start: 20210505
  6. METOPROLOL TARTRATE 25MG [Concomitant]
     Active Substance: METOPROLOL TARTRATE
  7. GLYBURIDE 5MG [Concomitant]
  8. LEVOTHYROXINE 0.088MCG [Concomitant]
  9. VITAMIN D 1000 UNITS [Concomitant]
  10. FISH OIL 1000MG [Concomitant]
  11. LISINOPRIL 10MG [Concomitant]
     Active Substance: LISINOPRIL

REACTIONS (1)
  - Transient ischaemic attack [None]

NARRATIVE: CASE EVENT DATE: 20210816
